FAERS Safety Report 6154435-X (Version None)
Quarter: 2009Q2

REPORT INFORMATION
  Report Type: 
  Country: None (occurrence: None)
  Receive Date: 20090414
  Receipt Date: 20090409
  Transmission Date: 20091009
  Serious: Yes (Hospitalization)
  Sender: FDA-Public Use
  Company Number: BE-MERCK-0403BEL00029

PATIENT
  Age: 60 Year
  Sex: Male

DRUGS (2)
  1. SINGULAIR [Suspect]
     Indication: ASTHMA
     Route: 048
     Dates: start: 20010101, end: 20020101
  2. CISAPRIDE [Concomitant]
     Route: 048
     Dates: end: 20020101

REACTIONS (1)
  - HEPATITIS TOXIC [None]
